FAERS Safety Report 11129502 (Version 1)
Quarter: 2015Q2

REPORT INFORMATION
  Report Type: Spontaneous
  Country: GR (occurrence: GR)
  Receive Date: 20150521
  Receipt Date: 20150521
  Transmission Date: 20150821
  Serious: Yes (Hospitalization, Other)
  Sender: FDA-Public Use
  Company Number: GR-GLENMARK PHARMACEUTICALS EUROPE LIMITED-2015GMK017030

PATIENT
  Age: 72 Year
  Sex: Male

DRUGS (2)
  1. ROPINIROLE. [Suspect]
     Active Substance: ROPINIROLE
     Indication: PARKINSON^S DISEASE
     Dosage: 15 MG, QD
  2. LEVODOPA/CARBIDOPA [Suspect]
     Active Substance: CARBIDOPA\LEVODOPA
     Indication: PARKINSON^S DISEASE
     Dosage: 1.35 G, QD

REACTIONS (3)
  - Normochromic normocytic anaemia [Recovered/Resolved]
  - Aortitis [Not Recovered/Not Resolved]
  - Aortic aneurysm [Not Recovered/Not Resolved]
